FAERS Safety Report 10573363 (Version 1)
Quarter: 2014Q4

REPORT INFORMATION
  Report Type: Spontaneous
  Country: TW (occurrence: None)
  Receive Date: 20141030
  Receipt Date: 20141030
  Transmission Date: 20150529
  Serious: Yes (Other)
  Sender: FDA-Public Use
  Company Number: PHHY2014TW078788

PATIENT
  Age: 63 Year
  Sex: Male
  Weight: 88.4 kg

DRUGS (3)
  1. SEBIVO [Suspect]
     Active Substance: TELBIVUDINE
     Indication: HEPATITIS B
     Dosage: 600 MG, ( DAILY) , ORAL
     Route: 048
     Dates: start: 20140106, end: 20140708
  2. SIROLIMUS. [Concomitant]
     Active Substance: SIROLIMUS
  3. MYCOPHENOLATE ( MYCOPHENOLATE MOFETIL) [Concomitant]

REACTIONS (3)
  - Myalgia [None]
  - Pain in extremity [None]
  - Blood creatine phosphokinase increased [None]

NARRATIVE: CASE EVENT DATE: 20140523
